FAERS Safety Report 8938354 (Version 2)
Quarter: 2012Q4

REPORT INFORMATION
  Report Type: 
  Country: US (occurrence: US)
  Receive Date: 20121130
  Receipt Date: 20121210
  Transmission Date: 20130627
  Serious: Yes (Death, Life-Threatening, Hospitalization)
  Sender: FDA-Public Use
  Company Number: US-ACTELION-A-NJ2012-73008

PATIENT
  Age: 71 Year
  Sex: Male

DRUGS (25)
  1. TRACLEER [Suspect]
     Indication: PULMONARY ARTERIAL HYPERTENSION
     Dosage: 62.5 mg, bid
     Route: 048
     Dates: start: 20120816, end: 201210
  2. PLAVIX [Concomitant]
     Dosage: 75 UNK, UNK
  3. MULTIVITAMIN [Concomitant]
     Dosage: UNK, qd
  4. MAGNESIUM OXIDE [Concomitant]
     Dosage: 400 UNK, bid
  5. PRIMIDONE [Concomitant]
     Dosage: 100 UNK, at h.s
  6. PROZAC [Concomitant]
     Dosage: 20 UNK, qd
  7. ATORVASTATIN [Concomitant]
     Dosage: 80 UNK, UNK
  8. SINEMET [Concomitant]
     Dosage: 25100 UNK, qid
  9. VITAMIN D [Concomitant]
     Dosage: 2000 UNK, UNK
  10. IMURAN [Concomitant]
     Dosage: 100 UNK, q h.s
  11. ADVAIR [Concomitant]
     Dosage: 2 UNK, bid
  12. PROVENTIL [Concomitant]
     Dosage: UNK, q4hrs
  13. DUONEB [Concomitant]
     Dosage: UNK, q4hrs
  14. FENTANYL [Concomitant]
     Dosage: 50 mcg, q 72hours
  15. MIRALAX [Concomitant]
     Dosage: 17 g, daily
  16. DULCOLAX [Concomitant]
     Dosage: daily
  17. AMBIEN [Concomitant]
     Dosage: 5 UNK, h.s p.r.n
  18. ATIVAN [Concomitant]
     Dosage: 1 mg, tid
  19. VANTIN [Concomitant]
     Dosage: 200 UNK, bid
  20. PROTONIX [Concomitant]
     Dosage: 40 UNK, daily
  21. BUMEX [Concomitant]
     Dosage: 2 mg, bid
  22. MORPHINE SULFATE [Concomitant]
     Dosage: 20 mg/ml, q 3 p.r.n
  23. PREDNISONE [Concomitant]
  24. DILAUDID [Concomitant]
     Dosage: 4 mg, q4hrs
  25. OXYGEN [Concomitant]
     Dosage: 5 l, UNK

REACTIONS (12)
  - Death [Fatal]
  - Chronic obstructive pulmonary disease [Unknown]
  - Diverticulitis [Unknown]
  - Colitis [Unknown]
  - Sepsis [Unknown]
  - Pyrexia [Recovering/Resolving]
  - Small intestinal obstruction [Unknown]
  - Abdominal pain [Unknown]
  - Pneumonia [Unknown]
  - Coronary artery disease [Unknown]
  - Cardiac failure congestive [Unknown]
  - Chest pain [Unknown]
